FAERS Safety Report 18222496 (Version 1)
Quarter: 2020Q3

REPORT INFORMATION
  Report Type: Spontaneous
  Country: US (occurrence: US)
  Receive Date: 20200902
  Receipt Date: 20200902
  Transmission Date: 20201103
  Serious: Yes (Hospitalization)
  Sender: FDA-Public Use
  Company Number: None

PATIENT
  Sex: Male

DRUGS (8)
  1. CENTRUM [Concomitant]
     Active Substance: VITAMINS
  2. NORVASC [Concomitant]
     Active Substance: AMLODIPINE BESYLATE
  3. ABIRATERONE ACETATE. [Suspect]
     Active Substance: ABIRATERONE ACETATE
     Indication: PROSTATE CANCER
     Route: 048
     Dates: start: 20200417
  4. PREDNISONE. [Concomitant]
     Active Substance: PREDNISONE
  5. LUPRON DEPOT [Concomitant]
     Active Substance: LEUPROLIDE ACETATE
  6. LIPITOR [Concomitant]
     Active Substance: ATORVASTATIN CALCIUM
  7. QUNOL LIQUID COQ10 SUPERIOR ABSORPTION [Concomitant]
     Active Substance: DIETARY SUPPLEMENT
  8. CALCIUM [Concomitant]
     Active Substance: CALCIUM

REACTIONS (1)
  - Cardiac operation [None]
